FAERS Safety Report 14957759 (Version 1)
Quarter: 2018Q2

REPORT INFORMATION
  Report Type: Spontaneous
  Country: US (occurrence: US)
  Receive Date: 20180531
  Receipt Date: 20180531
  Transmission Date: 20180711
  Serious: Yes (Other)
  Sender: FDA-Public Use
  Company Number: US-SA-2018SA058556

PATIENT
  Age: 58 Year
  Sex: Female
  Weight: 67.13 kg

DRUGS (7)
  1. EFFEXOR [Concomitant]
     Active Substance: VENLAFAXINE HYDROCHLORIDE
  2. TRICOR [FENOFIBRATE] [Concomitant]
  3. EPIRUBICIN [Concomitant]
     Active Substance: EPIRUBICIN
  4. DOXORUBICIN [Concomitant]
     Active Substance: DOXORUBICIN
  5. TAXOTERE [Suspect]
     Active Substance: DOCETAXEL
     Indication: BREAST CANCER FEMALE
     Dosage: 100 MG,Q3W
     Route: 051
     Dates: start: 20020222, end: 20020222
  6. AMARYL [Concomitant]
     Active Substance: GLIMEPIRIDE
  7. TAXOTERE [Suspect]
     Active Substance: DOCETAXEL
     Dosage: 100 MG,Q3W
     Route: 051
     Dates: start: 20020722, end: 20020722

REACTIONS (1)
  - Alopecia [Not Recovered/Not Resolved]

NARRATIVE: CASE EVENT DATE: 200209
